FAERS Safety Report 5218070-X (Version None)
Quarter: 2007Q1

REPORT INFORMATION
  Report Type: 
  Country: None (occurrence: None)
  Receive Date: 20061130
  Receipt Date: 20060901
  Transmission Date: 20070707
  Serious: Yes (Other)
  Sender: FDA-Public Use
  Company Number: US200609001166

PATIENT
  Sex: Male
  Weight: 93 kg

DRUGS (4)
  1. ZYPREXA [Suspect]
     Dosage: SEE IMAGE
     Dates: start: 20000101, end: 20030513
  2. ZYPREXA [Suspect]
     Dosage: SEE IMAGE
     Dates: start: 20030514, end: 20030818
  3. ZYPREXA [Suspect]
     Dosage: SEE IMAGE
     Dates: start: 20030819, end: 20060101
  4. HALOPERIDOL [Concomitant]

REACTIONS (1)
  - PANCREATITIS [None]
